FAERS Safety Report 16615004 (Version 2)
Quarter: 2019Q3

REPORT INFORMATION
  Report Type: Spontaneous
  Country: KR (occurrence: KR)
  Receive Date: 20190723
  Receipt Date: 20190726
  Transmission Date: 20191004
  Serious: Yes (Death, Other)
  Sender: FDA-Public Use
  Company Number: KR-009507513-1907KOR010976

PATIENT
  Age: 52 Year
  Sex: Female

DRUGS (1)
  1. PEMBROLIZUMAB. [Suspect]
     Active Substance: PEMBROLIZUMAB
     Indication: COLON CANCER METASTATIC
     Dosage: 100 MILLIGRAM, CYCLICAL (1ST CYCLE)

REACTIONS (3)
  - Superinfection bacterial [Fatal]
  - Pneumonia bacterial [Fatal]
  - Immune-mediated pneumonitis [Fatal]
